FAERS Safety Report 15329883 (Version 1)
Quarter: 2018Q3

REPORT INFORMATION
  Report Type: Spontaneous
  Country: US (occurrence: US)
  Receive Date: 20180824
  Receipt Date: 20180824
  Transmission Date: 20181010
  Serious: Yes (Other)
  Sender: FDA-Public Use
  Company Number: None

PATIENT
  Age: 71 Year
  Sex: Male
  Weight: 81.72 kg

DRUGS (11)
  1. ALLOPURINOL TAB  300MG [Concomitant]
  2. MEGESTROL SUSP [Concomitant]
  3. CARVEDILOL TAB  3.125MG [Concomitant]
  4. MORPHINE(IR) TAB,IR  7.5MG [Concomitant]
  5. LACTULOSE SOLN [Concomitant]
  6. MORPHINE SOLN,ORAL  4MG/2ML PO [Concomitant]
  7. RIBAVIRIN. [Suspect]
     Active Substance: RIBAVIRIN
  8. EPCLUSA [Suspect]
     Active Substance: SOFOSBUVIR\VELPATASVIR
  9. BUDESONIDE/FORMOTEROL INHL, [Concomitant]
  10. EPLERENONE TAB  25MG [Concomitant]
  11. FUROSEMIDE TAB  20MG [Concomitant]

REACTIONS (4)
  - Neuroendocrine carcinoma [None]
  - Pulmonary fibrosis [None]
  - Hypoxia [None]
  - Pleural effusion [None]

NARRATIVE: CASE EVENT DATE: 20180216
